FAERS Safety Report 7456211-4 (Version None)
Quarter: 2011Q2

REPORT INFORMATION
  Report Type: 
  Country: None (occurrence: None)
  Receive Date: 20110503
  Receipt Date: 20110428
  Transmission Date: 20111010
  Serious: Yes (Other)
  Sender: FDA-Public Use
  Company Number: KR-PFIZER INC-2010056873

PATIENT
  Sex: Male

DRUGS (3)
  1. ZELDOX [Suspect]
     Dosage: 40 MG, 1X/DAY, BEFORE SLEEP
     Route: 048
     Dates: start: 20091201
  2. STILNOX [Concomitant]
     Indication: INSOMNIA
     Dosage: 1.5 PILLS
     Route: 048
  3. XANAX [Suspect]
     Dosage: 1 DF, 2X/DAY
     Route: 048
     Dates: start: 20091201

REACTIONS (8)
  - GAIT DISTURBANCE [None]
  - FEELING ABNORMAL [None]
  - ASTHENIA [None]
  - DISTURBANCE IN ATTENTION [None]
  - DELUSION [None]
  - DEPRESSED LEVEL OF CONSCIOUSNESS [None]
  - AFFECT LABILITY [None]
  - DIZZINESS [None]
